FAERS Safety Report 5875681-6 (Version None)
Quarter: 2008Q3

REPORT INFORMATION
  Report Type: 
  Country: None (occurrence: None)
  Receive Date: 20080904
  Receipt Date: 20080821
  Transmission Date: 20090109
  Serious: Yes (Other)
  Sender: FDA-Public Use
  Company Number: 013835

PATIENT
  Age: 72 Year
  Sex: Female

DRUGS (6)
  1. PRIALT [Suspect]
     Indication: BACK PAIN
     Dosage: 0.02 UG, ONCE/HOUR, INTRATHECAL; 0.062 UG, ONCE/HOUR, INTRATHECAL; 0.041 UG, ONCE/HOUR, INTRATHECAL
     Route: 037
     Dates: end: 20080709
  2. PRIALT [Suspect]
     Indication: POST LAMINECTOMY SYNDROME
     Dosage: 0.02 UG, ONCE/HOUR, INTRATHECAL; 0.062 UG, ONCE/HOUR, INTRATHECAL; 0.041 UG, ONCE/HOUR, INTRATHECAL
     Route: 037
     Dates: end: 20080709
  3. PRIALT [Suspect]
     Indication: BACK PAIN
     Dosage: 0.02 UG, ONCE/HOUR, INTRATHECAL; 0.062 UG, ONCE/HOUR, INTRATHECAL; 0.041 UG, ONCE/HOUR, INTRATHECAL
     Route: 037
     Dates: start: 20080528
  4. PRIALT [Suspect]
     Indication: POST LAMINECTOMY SYNDROME
     Dosage: 0.02 UG, ONCE/HOUR, INTRATHECAL; 0.062 UG, ONCE/HOUR, INTRATHECAL; 0.041 UG, ONCE/HOUR, INTRATHECAL
     Route: 037
     Dates: start: 20080528
  5. PRIALT [Suspect]
     Indication: BACK PAIN
     Dosage: 0.02 UG, ONCE/HOUR, INTRATHECAL; 0.062 UG, ONCE/HOUR, INTRATHECAL; 0.041 UG, ONCE/HOUR, INTRATHECAL
     Route: 037
     Dates: start: 20080709
  6. PRIALT [Suspect]
     Indication: POST LAMINECTOMY SYNDROME
     Dosage: 0.02 UG, ONCE/HOUR, INTRATHECAL; 0.062 UG, ONCE/HOUR, INTRATHECAL; 0.041 UG, ONCE/HOUR, INTRATHECAL
     Route: 037
     Dates: start: 20080709

REACTIONS (2)
  - PERSONALITY CHANGE [None]
  - RENAL DISORDER [None]
